FAERS Safety Report 19882841 (Version 1)
Quarter: 2021Q3

REPORT INFORMATION
  Report Type: Spontaneous
  Country: CA (occurrence: CA)
  Receive Date: 20210924
  Receipt Date: 20210924
  Transmission Date: 20211014
  Serious: Yes (Other)
  Sender: FDA-Public Use
  Company Number: CA-SA-2021SA313521

PATIENT
  Age: 63 Year
  Sex: Male

DRUGS (1)
  1. ALEMTUZUMAB [Suspect]
     Active Substance: ALEMTUZUMAB
     Indication: LUNG TRANSPLANT REJECTION
     Dosage: UNK
     Route: 042

REACTIONS (4)
  - Purpura [Unknown]
  - Thrombocytopenia [Unknown]
  - Off label use [Unknown]
  - Rash [Unknown]
